FAERS Safety Report 22184757 (Version 1)
Quarter: 2023Q2

REPORT INFORMATION
  Report Type: Spontaneous
  Country: US (occurrence: US)
  Receive Date: 20230407
  Receipt Date: 20230407
  Transmission Date: 20230722
  Serious: No
  Sender: FDA-Public Use
  Company Number: US-Melinta Therapeutics, LLC-US-MLNT-23-00053

PATIENT
  Age: 68 Year
  Sex: Female

DRUGS (1)
  1. KIMYRSA [Suspect]
     Active Substance: ORITAVANCIN DIPHOSPHATE
     Indication: Product used for unknown indication
     Dosage: {10ML DID NOT RECEIVE
     Route: 041
     Dates: start: 20230113, end: 20230113

REACTIONS (6)
  - Blood pressure increased [Recovered/Resolved]
  - Heart rate irregular [Recovered/Resolved]
  - Oral pruritus [Recovered/Resolved]
  - Urticaria [Recovered/Resolved]
  - Chills [Recovered/Resolved]
  - Somnolence [Recovered/Resolved]

NARRATIVE: CASE EVENT DATE: 20230113
